FAERS Safety Report 8450106-5 (Version None)
Quarter: 2012Q2

REPORT INFORMATION
  Report Type: 
  Country: None (occurrence: None)
  Receive Date: 20120614
  Receipt Date: 20120614
  Transmission Date: 20120825
  Serious: No
  Sender: FDA-Public Use
  Company Number: None

PATIENT
  Sex: Female

DRUGS (2)
  1. LEVOTHYROXINE SODIUM [Suspect]
     Dosage: LEVOTHYROXINE (1) DAILY ORAL
     Route: 048
     Dates: start: 20120223, end: 20120608
  2. LEVOXYL [Suspect]
     Indication: HYPOTHYROIDISM
     Dosage: LEVOXYL (1) DAILY ORAL
     Route: 048
     Dates: start: 20120214, end: 20120223

REACTIONS (3)
  - NAUSEA [None]
  - VOMITING [None]
  - TACHYCARDIA [None]
